FAERS Safety Report 26110901 (Version 1)
Quarter: 2025Q4

REPORT INFORMATION
  Report Type: Report from Study
  Country: EU (occurrence: EU)
  Receive Date: 20251202
  Receipt Date: 20251202
  Transmission Date: 20260118
  Serious: Yes (Death, Other)
  Sender: SERVIER
  Company Number: EU-SERVIER-S25017343

PATIENT

DRUGS (2)
  1. TIBSOVO [Suspect]
     Active Substance: IVOSIDENIB
     Indication: Acute myeloid leukaemia
     Dosage: 500  MG, QD
     Route: 048
     Dates: start: 20251118, end: 20251127
  2. MOLIDUSTAT [Concomitant]
     Active Substance: MOLIDUSTAT
     Indication: Acute myeloid leukaemia
     Dosage: 150  MG, QD
     Route: 048
     Dates: start: 20251118, end: 20251127

REACTIONS (2)
  - Differentiation syndrome [Fatal]
  - Acute kidney injury [Not Recovered/Not Resolved]

NARRATIVE: CASE EVENT DATE: 20251126
